FAERS Safety Report 10502268 (Version 2)
Quarter: 2014Q4

REPORT INFORMATION
  Report Type: Spontaneous
  Country: CH (occurrence: CH)
  Receive Date: 20141007
  Receipt Date: 20141031
  Transmission Date: 20150528
  Serious: Yes (Life-Threatening, Hospitalization, Other)
  Sender: FDA-Public Use
  Company Number: CH-TEVA-513103ISR

PATIENT
  Age: 69 Year
  Sex: Male

DRUGS (7)
  1. INEGY 10/20 [Interacting]
     Active Substance: EZETIMIBE\SIMVASTATIN
     Indication: HYPERLIPIDAEMIA
     Dosage: 1 DOSAGE FORMS DAILY; 1 DF = 10 MG EZETIMIBE AND 20 MG SIMVASTATIN, 1-0-0-0
     Route: 048
  2. NORFLOXACIN [Suspect]
     Active Substance: NORFLOXACIN
     Indication: PROPHYLAXIS URINARY TRACT INFECTION
     Dosage: BRAND NAME AND DOSAGE UNKNOWN
     Route: 065
     Dates: start: 20140905, end: 20140906
  3. UVAMIN RETARD [Suspect]
     Active Substance: NITROFURANTOIN
     Indication: PROPHYLAXIS URINARY TRACT INFECTION
     Dosage: 200 MILLIGRAM DAILY; 2 DOSAGE FORMS PER DAY
     Route: 048
     Dates: start: 20140908, end: 20140909
  4. CONCOR 5 MG [Concomitant]
     Dosage: 5 MILLIGRAM DAILY; 1-0-0-0
     Route: 048
  5. EUTHYROX 25 [Concomitant]
     Dosage: .025 MILLIGRAM DAILY; 1-0-0-0
     Route: 048
  6. EXFORGE [Interacting]
     Active Substance: AMLODIPINE BESYLATE\VALSARTAN
     Indication: HYPERLIPIDAEMIA
     Dosage: 1 DOSAGE FORMS DAILY; 1 DF = 80 MG VALSARTAN + 5 MG AMLODIPINE BESILATE, 1-0-0-0
     Route: 048
  7. ASPIRIN CARDIO [Concomitant]
     Active Substance: ASPIRIN
     Indication: CORONARY ARTERY DISEASE
     Dosage: 100 MILLIGRAM DAILY; 1-0-0-0
     Route: 048

REACTIONS (14)
  - Chills [Unknown]
  - Blood creatinine increased [Recovering/Resolving]
  - Amnesia [Recovered/Resolved]
  - Drug interaction [Recovered/Resolved]
  - Blood urea increased [Recovering/Resolving]
  - Musculoskeletal pain [Unknown]
  - Rhabdomyolysis [Recovering/Resolving]
  - Blood creatine phosphokinase increased [Recovering/Resolving]
  - Urosepsis [Unknown]
  - Acute kidney injury [Recovering/Resolving]
  - Metabolic acidosis [Recovering/Resolving]
  - Micturition urgency [Unknown]
  - Thrombocytopenia [Unknown]
  - Asthenia [Unknown]

NARRATIVE: CASE EVENT DATE: 201409
